FAERS Safety Report 7511569-2 (Version None)
Quarter: 2011Q2

REPORT INFORMATION
  Report Type: 
  Country: None (occurrence: None)
  Receive Date: 20110531
  Receipt Date: 20110524
  Transmission Date: 20111010
  Serious: Yes (Hospitalization, Other)
  Sender: FDA-Public Use
  Company Number: DE-PFIZER INC-2011099607

PATIENT
  Age: 70 Year
  Sex: Male
  Weight: 84 kg

DRUGS (2)
  1. ATORVASTATIN CALCIUM [Suspect]
     Dosage: 40 MG, 1X/DAY
     Route: 048
     Dates: start: 20050101, end: 20110301
  2. ATORVASTATIN CALCIUM [Suspect]
     Indication: STENT PLACEMENT
     Dosage: UNK

REACTIONS (1)
  - TRANSIENT ISCHAEMIC ATTACK [None]
